FAERS Safety Report 15813961 (Version 3)
Quarter: 2019Q2

REPORT INFORMATION
  Report Type: Spontaneous
  Country: US (occurrence: US)
  Receive Date: 20190111
  Receipt Date: 20190523
  Transmission Date: 20190711
  Serious: Yes (Other)
  Sender: FDA-Public Use
  Company Number: US-PFIZER INC-2019013264

PATIENT
  Age: 55 Year
  Sex: Male
  Weight: 100 kg

DRUGS (2)
  1. LYRICA [Suspect]
     Active Substance: PREGABALIN
     Indication: NEUROPATHY PERIPHERAL
     Dosage: 150 MG, 2X/DAY
  2. LYRICA [Suspect]
     Active Substance: PREGABALIN
     Indication: PAIN IN EXTREMITY
     Dosage: 300 MG, 2X/DAY
     Route: 048

REACTIONS (6)
  - Drug ineffective [Unknown]
  - Myocardial infarction [Unknown]
  - Diabetes mellitus [Unknown]
  - Pain in extremity [Not Recovered/Not Resolved]
  - Condition aggravated [Unknown]
  - Paraesthesia [Unknown]

NARRATIVE: CASE EVENT DATE: 201705
